FAERS Safety Report 8572499-0 (Version None)
Quarter: 2012Q2

REPORT INFORMATION
  Report Type: 
  Country: None (occurrence: None)
  Receive Date: 20120419
  Receipt Date: 20120419
  Transmission Date: 20120825
  Serious: Yes (Hospitalization)
  Sender: FDA-Public Use
  Company Number: ALL1-2011-02639

PATIENT
  Age: 48 Year
  Sex: Male
  Weight: 93 kg

DRUGS (1)
  1. LIALDA [Suspect]
     Indication: COLITIS ULCERATIVE
     Dosage: 4.8 G, OTHER (FOUR 1.2 G TABLETS WITH MEALS), ORAL
     Route: 048
     Dates: start: 20110501, end: 20110703

REACTIONS (3)
  - HEADACHE [None]
  - HEPATITIS VIRAL [None]
  - BILIARY TRACT DISORDER [None]
